FAERS Safety Report 6443387-0 (Version None)
Quarter: 2009Q4

REPORT INFORMATION
  Report Type: 
  Country: None (occurrence: None)
  Receive Date: 20091117
  Receipt Date: 20091106
  Transmission Date: 20100525
  Serious: Yes (Hospitalization)
  Sender: FDA-Public Use
  Company Number: DE-WYE-H10819009

PATIENT
  Age: 78 Year
  Sex: Female
  Weight: 59 kg

DRUGS (13)
  1. PANTOZOL [Suspect]
     Indication: HELICOBACTER INFECTION
     Route: 048
     Dates: start: 20090430
  2. CLARITHROMYCIN [Interacting]
     Indication: HELICOBACTER INFECTION
     Route: 048
     Dates: start: 20090506, end: 20090511
  3. ORELOX [Interacting]
     Indication: PNEUMONIA
     Route: 048
     Dates: start: 20090509, end: 20090511
  4. ROCEPHIN [Interacting]
     Indication: PNEUMONIA
     Route: 042
     Dates: start: 20090502, end: 20090505
  5. ALDACTONE [Concomitant]
     Indication: CARDIAC FAILURE CHRONIC
     Dates: start: 20080401
  6. TORSEMIDE [Concomitant]
     Indication: HYPERTENSION
     Route: 048
     Dates: start: 20090501
  7. DIGITOXIN INJ [Concomitant]
     Indication: TACHYARRHYTHMIA
     Route: 048
     Dates: start: 20080401
  8. FALITHROM [Concomitant]
     Indication: AORTIC VALVE REPLACEMENT
     Dosage: ^AFTER VALUESRESULTS ABOUT 1.5 MG PER DAY^
     Route: 048
     Dates: start: 20050801
  9. QUINAPRIL [Concomitant]
     Indication: HYPERTENSION
     Route: 048
     Dates: start: 20090401
  10. SIMVASTATIN [Concomitant]
     Indication: HYPERLIPIDAEMIA
     Route: 048
     Dates: start: 20080401
  11. THEOPHYLLINE [Concomitant]
     Indication: CHRONIC OBSTRUCTIVE PULMONARY DISEASE
     Route: 048
     Dates: start: 20080401
  12. AMOXYPEN ^BRISTOL^ [Interacting]
     Indication: HELICOBACTER INFECTION
     Route: 048
     Dates: start: 20090506, end: 20090511
  13. BISOPROLOL [Concomitant]
     Indication: HYPERTENSION
     Route: 048
     Dates: start: 20080401

REACTIONS (2)
  - CLOSTRIDIUM DIFFICILE COLITIS [None]
  - DRUG INTERACTION [None]
